FAERS Safety Report 4891475-2 (Version None)
Quarter: 2005Q4

REPORT INFORMATION
  Report Type: 
  Country: None (occurrence: None)
  Receive Date: 20051221
  Receipt Date: 20051008
  Transmission Date: 20060501
  Serious: No
  Sender: FDA-Public Use
  Company Number: US153582

PATIENT
  Sex: Female

DRUGS (5)
  1. SENSIPAR [Suspect]
     Indication: HYPERPARATHYROIDISM SECONDARY
     Dosage: 30 MG, 1 IN 1 DAYS
  2. PRAVASTATIN SODIUM [Concomitant]
  3. LABETALOL HCL [Concomitant]
  4. MULTIVITAMIN [Concomitant]
  5. EZETIMIBE [Concomitant]

REACTIONS (3)
  - FREQUENT BOWEL MOVEMENTS [None]
  - MUSCLE SPASMS [None]
  - MYALGIA [None]
